FAERS Safety Report 18497558 (Version 3)
Quarter: 2020Q4

REPORT INFORMATION
  Report Type: Spontaneous
  Country: CO (occurrence: CO)
  Receive Date: 20201112
  Receipt Date: 20201124
  Transmission Date: 20210114
  Serious: Yes (Hospitalization)
  Sender: FDA-Public Use
  Company Number: CO-BIOMARINAP-CO-2020-133300

PATIENT
  Age: 8 Year
  Sex: Male
  Weight: 19 kg

DRUGS (1)
  1. VIMIZIM [Suspect]
     Active Substance: ELOSULFASE ALFA
     Indication: MUCOPOLYSACCHARIDOSIS IV
     Dosage: 40 MILLIGRAM, QW
     Route: 042
     Dates: start: 20180615

REACTIONS (8)
  - Spinal decompression [Unknown]
  - Hypokinesia [Unknown]
  - Mobility decreased [Unknown]
  - Inflammation [Unknown]
  - Asthenia [Unknown]
  - Oedema [Unknown]
  - Neck pain [Unknown]
  - Back pain [Unknown]

NARRATIVE: CASE EVENT DATE: 202011
